FAERS Safety Report 14988021 (Version 1)
Quarter: 2018Q2

REPORT INFORMATION
  Report Type: Spontaneous
  Country: US (occurrence: US)
  Receive Date: 20180519
  Receipt Date: 20180519
  Transmission Date: 20180711
  Serious: Yes (Disabling)
  Sender: FDA-Public Use
  Company Number: None

PATIENT
  Age: 18 Month
  Sex: Male
  Weight: 20.7 kg

DRUGS (1)
  1. POLYETHYLENE GLYCOL 3350 NF [Suspect]
     Active Substance: POLYETHYLENE GLYCOL 3350
     Indication: CONSTIPATION
     Dosage: ?          QUANTITY:255 GRAMS;?
     Route: 048
     Dates: start: 20170801, end: 20180519

REACTIONS (6)
  - Developmental delay [None]
  - Therapy change [None]
  - Obsessive-compulsive disorder [None]
  - Drug ineffective [None]
  - Speech disorder developmental [None]
  - Tic [None]

NARRATIVE: CASE EVENT DATE: 20170911
